FAERS Safety Report 4336978-4 (Version None)
Quarter: 2004Q1

REPORT INFORMATION
  Report Type: 
  Country: None (occurrence: None)
  Receive Date: 20040329
  Receipt Date: 20040205
  Transmission Date: 20041129
  Serious: No
  Sender: FDA-Public Use
  Company Number: USA040258621

PATIENT
  Age: 37 Year
  Sex: Male
  Weight: 82 kg

DRUGS (3)
  1. STRATTERA [Suspect]
     Indication: ATTENTION DEFICIT/HYPERACTIVITY DISORDER
     Dates: start: 20030101
  2. ZOLOFT [Concomitant]
  3. ADDERALL 10 [Concomitant]

REACTIONS (3)
  - BRONCHITIS [None]
  - FOLLICULITIS [None]
  - HEPATIC ENZYME INCREASED [None]
